FAERS Safety Report 24145466 (Version 1)
Quarter: 2024Q3

REPORT INFORMATION
  Report Type: Report from Study
  Country: IN (occurrence: IN)
  Receive Date: 20240729
  Receipt Date: 20240729
  Transmission Date: 20241016
  Serious: Yes (Other)
  Sender: ROCHE
  Company Number: IN-ROCHE-10000032503

PATIENT

DRUGS (33)
  1. VALGANCICLOVIR [Interacting]
     Active Substance: VALGANCICLOVIR
     Indication: Chronic kidney disease
     Route: 065
  2. MYCOPHENOLATE MOFETIL [Interacting]
     Active Substance: MYCOPHENOLATE MOFETIL
     Indication: Chronic kidney disease
     Route: 065
  3. CALCIUM GLUCONATE [Interacting]
     Active Substance: CALCIUM GLUCONATE
     Indication: Chronic kidney disease
     Route: 042
  4. RABEPRAZOLE [Interacting]
     Active Substance: RABEPRAZOLE
     Indication: Chronic kidney disease
     Route: 065
  5. CYCLOSPORINE [Interacting]
     Active Substance: CYCLOSPORINE
     Indication: Chronic kidney disease
     Route: 065
  6. PHENOBARBITAL [Interacting]
     Active Substance: PHENOBARBITAL
     Indication: Chronic kidney disease
     Route: 065
  7. CEFPODOXIME [Interacting]
     Active Substance: CEFPODOXIME
     Indication: Chronic kidney disease
     Route: 065
  8. PROMETHAZINE [Interacting]
     Active Substance: PROMETHAZINE HYDROCHLORIDE
     Indication: Chronic kidney disease
     Route: 065
  9. VERAPAMIL [Interacting]
     Active Substance: VERAPAMIL HYDROCHLORIDE
     Indication: Chronic kidney disease
     Route: 065
  10. CEFTRIAXONE [Interacting]
     Active Substance: CEFTRIAXONE\CEFTRIAXONE SODIUM
     Indication: Chronic kidney disease
     Route: 065
  11. HEPARIN [Interacting]
     Active Substance: HEPARIN SODIUM
     Indication: Chronic kidney disease
     Route: 065
  12. LISINOPRIL [Interacting]
     Active Substance: LISINOPRIL
     Indication: Chronic kidney disease
     Route: 065
  13. CALCIUM CARBONATE [Interacting]
     Active Substance: CALCIUM CARBONATE
     Indication: Chronic kidney disease
     Route: 048
  14. AMLODIPINE [Interacting]
     Active Substance: AMLODIPINE BESYLATE
     Indication: Chronic kidney disease
     Route: 065
  15. FERROUS SULFATE [Interacting]
     Active Substance: FERROUS SULFATE
     Indication: Chronic kidney disease
     Route: 048
  16. ATORVASTATIN [Interacting]
     Active Substance: ATORVASTATIN
     Indication: Chronic kidney disease
     Route: 065
  17. NIFEDIPINE [Interacting]
     Active Substance: NIFEDIPINE
     Indication: Chronic kidney disease
     Route: 065
  18. METOCLOPRAMIDE [Interacting]
     Active Substance: METOCLOPRAMIDE
     Indication: Chronic kidney disease
     Route: 065
  19. CIPROFLOXACIN [Interacting]
     Active Substance: CIPROFLOXACIN
     Indication: Chronic kidney disease
     Route: 065
  20. DIGOXIN [Interacting]
     Active Substance: DIGOXIN
     Indication: Chronic kidney disease
     Route: 065
  21. LOSARTAN [Interacting]
     Active Substance: LOSARTAN
     Indication: Chronic kidney disease
     Route: 065
  22. OMEPRAZOLE [Interacting]
     Active Substance: OMEPRAZOLE
     Indication: Chronic kidney disease
     Route: 065
  23. CLOPIDOGREL [Interacting]
     Active Substance: CLOPIDOGREL BISULFATE
     Indication: Chronic kidney disease
     Route: 065
  24. ARTEMETHER\LUMEFANTRINE [Interacting]
     Active Substance: ARTEMETHER\LUMEFANTRINE
     Indication: Chronic kidney disease
     Route: 065
  25. PREDNISOLONE [Interacting]
     Active Substance: PREDNISOLONE
     Indication: Chronic kidney disease
     Route: 065
  26. SIMVASTATIN [Interacting]
     Active Substance: SIMVASTATIN
     Indication: Chronic kidney disease
     Route: 065
  27. TACROLIMUS [Interacting]
     Active Substance: TACROLIMUS
     Indication: Chronic kidney disease
     Route: 065
  28. ABACAVIR [Interacting]
     Active Substance: ABACAVIR
     Indication: Chronic kidney disease
     Route: 065
  29. DIPYRIDAMOLE [Interacting]
     Active Substance: DIPYRIDAMOLE
     Indication: Chronic kidney disease
     Route: 065
  30. WARFARIN [Interacting]
     Active Substance: WARFARIN
     Indication: Chronic kidney disease
     Route: 065
  31. ALLOPURINOL [Interacting]
     Active Substance: ALLOPURINOL
     Indication: Chronic kidney disease
     Route: 065
  32. HYDROXYCHLOROQUINE [Interacting]
     Active Substance: HYDROXYCHLOROQUINE
     Indication: Chronic kidney disease
     Route: 065
  33. HALOPERIDOL [Interacting]
     Active Substance: HALOPERIDOL
     Indication: Chronic kidney disease
     Route: 065

REACTIONS (1)
  - Drug interaction [Unknown]
